FAERS Safety Report 8568449-3 (Version None)
Quarter: 2012Q3

REPORT INFORMATION
  Report Type: 
  Country: None (occurrence: None)
  Receive Date: 20120803
  Receipt Date: 20120201
  Transmission Date: 20120928
  Serious: No
  Sender: FDA-Public Use
  Company Number: US-ABBOTT-12P-163-0899899-00

PATIENT
  Sex: Female
  Weight: 54.48 kg

DRUGS (4)
  1. ZETIA [Concomitant]
     Indication: PRODUCT USED FOR UNKNOWN INDICATION
  2. LEVOTHYROXINE SODIUM [Concomitant]
     Indication: PRODUCT USED FOR UNKNOWN INDICATION
  3. NIASPAN [Suspect]
     Indication: PRODUCT USED FOR UNKNOWN INDICATION
  4. FLUTICASONE FUROATE [Concomitant]
     Indication: SEASONAL ALLERGY

REACTIONS (1)
  - BLOOD GLUCOSE INCREASED [None]
